FAERS Safety Report 7137756-3 (Version None)
Quarter: 2010Q4

REPORT INFORMATION
  Report Type: 
  Country: None (occurrence: None)
  Receive Date: 20101119
  Receipt Date: 20101104
  Transmission Date: 20110411
  Serious: Yes (Hospitalization)
  Sender: FDA-Public Use
  Company Number: 020113

PATIENT
  Sex: Male
  Weight: 46.7 kg

DRUGS (12)
  1. CIMZIA [Suspect]
     Indication: CROHN'S DISEASE
     Dosage: (200 MG  1X/2 WEEKS SUBCUTANEOUS)
     Route: 058
     Dates: start: 20090130, end: 20100901
  2. PREDNISONE [Concomitant]
  3. MEGACE [Concomitant]
  4. FOLIC ACID [Concomitant]
  5. PROMETHAZINE [Concomitant]
  6. ROXICODONE [Concomitant]
  7. MIRAPEX [Concomitant]
  8. PRAZOSIN HYDROCHLORIDE [Concomitant]
  9. LORAZEPAM [Concomitant]
  10. METHADONE [Concomitant]
  11. OMEPRAZOLE [Concomitant]
  12. OXYCODONE [Concomitant]

REACTIONS (28)
  - ACTIVATED PARTIAL THROMBOPLASTIN TIME PROLONGED [None]
  - ALBUMIN GLOBULIN RATIO DECREASED [None]
  - BACTERIAL TEST POSITIVE [None]
  - BLOOD ALBUMIN DECREASED [None]
  - BLOOD ALKALINE PHOSPHATASE INCREASED [None]
  - BLOOD AMYLASE DECREASED [None]
  - BLOOD GLUCOSE INCREASED [None]
  - BLOOD SODIUM DECREASED [None]
  - BLOOD UREA INCREASED [None]
  - CONDITION AGGRAVATED [None]
  - CROHN'S DISEASE [None]
  - DRUG ABUSE [None]
  - FUNGAL TEST POSITIVE [None]
  - GLOBULINS INCREASED [None]
  - HAEMATOCRIT DECREASED [None]
  - HAEMOGLOBIN DECREASED [None]
  - LYMPHOCYTE PERCENTAGE DECREASED [None]
  - MALNUTRITION [None]
  - NEUTROPHIL COUNT INCREASED [None]
  - PNEUMONIA [None]
  - PROTEIN TOTAL INCREASED [None]
  - PROTHROMBIN TIME PROLONGED [None]
  - PURPURA [None]
  - RASH MACULO-PAPULAR [None]
  - RASH PRURITIC [None]
  - RED CELL DISTRIBUTION WIDTH INCREASED [None]
  - WEIGHT INCREASED [None]
  - WHITE BLOOD CELL COUNT INCREASED [None]
